FAERS Safety Report 14858557 (Version 1)
Quarter: 2018Q2

REPORT INFORMATION
  Report Type: Spontaneous
  Country: FR (occurrence: FR)
  Receive Date: 20180508
  Receipt Date: 20180508
  Transmission Date: 20180711
  Serious: Yes (Other)
  Sender: FDA-Public Use
  Company Number: FR-MERCK KGAA-2047366

PATIENT
  Age: 58 Year
  Sex: Female

DRUGS (1)
  1. NOVOTHYROX [Suspect]
     Active Substance: LEVOTHYROXINE SODIUM
     Indication: HYPOTHYROIDISM

REACTIONS (24)
  - Myalgia [None]
  - Pruritus [None]
  - Gastrointestinal disorder [None]
  - Visual impairment [None]
  - Irritability [None]
  - Gastrooesophageal reflux disease [None]
  - Chest pain [None]
  - Disturbance in attention [None]
  - Impatience [None]
  - Decreased appetite [None]
  - Hot flush [None]
  - Headache [None]
  - Dry eye [None]
  - Weight increased [None]
  - Temperature intolerance [None]
  - Fatigue [None]
  - Dyspnoea [None]
  - Crying [None]
  - Blood thyroid stimulating hormone [None]
  - Mental impairment [None]
  - Amnesia [None]
  - Insomnia [None]
  - Hyperhidrosis [None]
  - Palpitations [None]

NARRATIVE: CASE EVENT DATE: 201704
